FAERS Safety Report 7052690-5 (Version None)
Quarter: 2010Q4

REPORT INFORMATION
  Report Type: 
  Country: None (occurrence: None)
  Receive Date: 20101019
  Receipt Date: 20101012
  Transmission Date: 20110411
  Serious: Yes (Other)
  Sender: FDA-Public Use
  Company Number: US-PFIZER INC-2010108427

PATIENT
  Age: 53 Year
  Sex: Female
  Weight: 63.502 kg

DRUGS (1)
  1. SOLU-MEDROL [Suspect]
     Indication: MULTIPLE SCLEROSIS
     Dosage: ONE TIME DOSE OF 1 GRAM
     Route: 042

REACTIONS (2)
  - PRURITUS [None]
  - RASH [None]
